FAERS Safety Report 15748105 (Version 1)
Quarter: 2018Q4

REPORT INFORMATION
  Report Type: Spontaneous
  Country: US (occurrence: US)
  Receive Date: 20181221
  Receipt Date: 20181221
  Transmission Date: 20190205
  Serious: Yes (Hospitalization, Other)
  Sender: FDA-Public Use
  Company Number: US-ZYDUS-031575

PATIENT
  Age: 17 Year
  Sex: Female

DRUGS (2)
  1. ESCITALOPRAM [Suspect]
     Active Substance: ESCITALOPRAM OXALATE
     Indication: AFFECTIVE DISORDER
     Route: 065
  2. LAMOTRIGINE. [Suspect]
     Active Substance: LAMOTRIGINE
     Indication: AFFECTIVE DISORDER
     Route: 065

REACTIONS (12)
  - Drug reaction with eosinophilia and systemic symptoms [Recovered/Resolved]
  - Pyrexia [Recovered/Resolved]
  - Rash erythematous [Recovered/Resolved]
  - Lymphadenopathy [Recovered/Resolved]
  - Hepatic failure [Recovered/Resolved]
  - Eosinophilia [Recovered/Resolved]
  - Angioedema [Recovered/Resolved]
  - Lymphocytosis [Recovered/Resolved]
  - Toxic epidermal necrolysis [Recovered/Resolved]
  - Lymph node pain [Recovered/Resolved]
  - Abdominal discomfort [Recovered/Resolved]
  - Rash pruritic [Recovered/Resolved]
